FAERS Safety Report 7973465-6 (Version None)
Quarter: 2011Q4

REPORT INFORMATION
  Report Type: 
  Country: None (occurrence: None)
  Receive Date: 20111213
  Receipt Date: 20111207
  Transmission Date: 20120403
  Serious: No
  Sender: FDA-Public Use
  Company Number: US-B.I. PHARMACEUTICALS,INC./RIDGEFIELD-2011-BP-01161BP

PATIENT
  Sex: Female

DRUGS (9)
  1. SERTRALINE HYDROCHLORIDE [Concomitant]
     Indication: ANXIETY
     Route: 048
  2. PRADAXA [Suspect]
     Indication: ATRIAL FIBRILLATION
     Dosage: 300 MG
     Route: 048
     Dates: start: 20101101
  3. TYLENOL ARTHRITIS RELIEF [Concomitant]
     Indication: ARTHRITIS
  4. ZOLOFT [Concomitant]
     Indication: ANXIETY
     Dosage: 50 MG
  5. ASCORBIC ACID [Concomitant]
     Indication: SUPPLEMENTATION THERAPY
  6. CALCIUM [Concomitant]
     Indication: SUPPLEMENTATION THERAPY
     Route: 048
  7. MULTI-VITAMIN [Concomitant]
     Indication: SUPPLEMENTATION THERAPY
     Route: 048
  8. ASPIRIN [Concomitant]
     Dosage: 81 MG
  9. VITAMIN D [Concomitant]
     Indication: SUPPLEMENTATION THERAPY
     Route: 048

REACTIONS (5)
  - ABDOMINAL DISCOMFORT [None]
  - CONTUSION [None]
  - NAUSEA [None]
  - DYSPEPSIA [None]
  - THROAT IRRITATION [None]
